FAERS Safety Report 16315343 (Version 1)
Quarter: 2019Q2

REPORT INFORMATION
  Report Type: Spontaneous
  Country: US (occurrence: US)
  Receive Date: 20190515
  Receipt Date: 20190515
  Transmission Date: 20190711
  Serious: No
  Sender: FDA-Public Use
  Company Number: US-SA-2019SA124298

PATIENT
  Age: 22 Year
  Sex: Female

DRUGS (3)
  1. ADMELOG [Suspect]
     Active Substance: INSULIN LISPRO
     Dosage: SHE BOLUS^ AN AVERAGE OF 50 UNITS PER DAY
     Route: 065
  2. ADMELOG [Suspect]
     Active Substance: INSULIN LISPRO
     Indication: TYPE 1 DIABETES MELLITUS
     Dosage: BASAL RATE OF 41 UNITS PER DAY
     Route: 065
  3. NOVOLOG [Concomitant]
     Active Substance: INSULIN ASPART
     Dosage: UNKNOW
     Route: 065

REACTIONS (2)
  - Drug ineffective [Unknown]
  - Incorrect dose administered [Unknown]
